FAERS Safety Report 12698688 (Version 1)
Quarter: 2016Q3

REPORT INFORMATION
  Report Type: Spontaneous
  Country: US (occurrence: US)
  Receive Date: 20160830
  Receipt Date: 20160830
  Transmission Date: 20161109
  Serious: No
  Sender: FDA-Public Use
  Company Number: US-PERRIGO-16US016905

PATIENT
  Age: 53 Year
  Sex: Female
  Weight: 63.49 kg

DRUGS (4)
  1. EVAMIST [Suspect]
     Active Substance: ESTRADIOL
     Indication: HOT FLUSH
     Dosage: 4.59 MG, QD
     Route: 062
     Dates: start: 2015, end: 201605
  2. EVAMIST [Suspect]
     Active Substance: ESTRADIOL
     Dosage: UNKNOWN, SINGLE
     Route: 062
     Dates: start: 20160605, end: 20160606
  3. EVAMIST [Suspect]
     Active Substance: ESTRADIOL
     Dosage: 4.59 MG, QD
     Route: 062
     Dates: start: 201605, end: 20160604
  4. EVAMIST [Suspect]
     Active Substance: ESTRADIOL
     Dosage: 4.59 MG, QD
     Route: 062
     Dates: start: 201606

REACTIONS (4)
  - Migraine [Recovered/Resolved]
  - Drug effect decreased [Recovered/Resolved]
  - Underdose [Recovered/Resolved]
  - Incorrect dose administered [Recovered/Resolved]

NARRATIVE: CASE EVENT DATE: 2015
